FAERS Safety Report 9412240 (Version 1)
Quarter: 2013Q2

REPORT INFORMATION
  Report Type: Spontaneous
  Country: DE (occurrence: DE)
  Receive Date: 20130422
  Receipt Date: 20130422
  Transmission Date: 20140414
  Serious: Yes (Other)
  Sender: FDA-Public Use
  Company Number: 1303-362

PATIENT
  Sex: Male

DRUGS (7)
  1. EYLEA (AFLIBERCEPT)(INJECTION)(AFLIBERCEPT) [Suspect]
     Indication: AGE-RELATED MACULAR DEGENERATION
     Route: 031
     Dates: start: 20130228, end: 20130228
  2. XYLOCAINE (LIDOCAINE)(EYE DROPS) [Concomitant]
  3. CRAVIT (LEVOFLOXACIN)(EYE DROPS) [Concomitant]
  4. BASEN (VOGLIBOSE)(TABLET) [Concomitant]
  5. AMARYL (GLIMEPIRIDE)(TABLET) [Concomitant]
  6. KINEDAK (EPALRESTAT)(TABLET) [Concomitant]
  7. TIGASONE (ETRETINATE)(CAPSULE) [Concomitant]

REACTIONS (1)
  - Retinal vasculitis [None]
